FAERS Safety Report 5570124-4 (Version None)
Quarter: 2007Q4

REPORT INFORMATION
  Report Type: 
  Country: None (occurrence: None)
  Receive Date: 20071217
  Receipt Date: 20071204
  Transmission Date: 20080405
  Serious: Yes (Other)
  Sender: FDA-Public Use
  Company Number: 2007-04085

PATIENT
  Age: 41 Year
  Sex: Female

DRUGS (2)
  1. VELCADE [Suspect]
     Indication: MULTIPLE MYELOMA
     Dosage: 9.20 MG, INTRAVENOUS
     Route: 042
     Dates: start: 20070216, end: 20070602
  2. DEXAMETHASONE TAB [Concomitant]

REACTIONS (2)
  - BRONCHOSPASM [None]
  - PRODUCTIVE COUGH [None]
